FAERS Safety Report 8600459 (Version 2)
Quarter: 2012Q4

REPORT INFORMATION
  Report Type: 
  Country: US (occurrence: US)
  Receive Date: 20120606
  Receipt Date: 20121026
  Transmission Date: 20130627
  Serious: Yes (Other)
  Sender: FDA-Public Use
  Company Number: US-BAYER-2012-055405

PATIENT
  Age: 33 Year
  Sex: Female
  Weight: 61.68 kg

DRUGS (15)
  1. YAZ [Suspect]
     Indication: ACNE
     Dosage: UNK
     Dates: start: 200808, end: 200810
  2. YAZ [Suspect]
     Indication: ENDOMETRIOSIS
     Dosage: UNK
     Dates: start: 200901, end: 201006
  3. YASMIN [Suspect]
     Indication: ACNE
     Dosage: UNK
     Dates: start: 20070131, end: 200804
  4. YASMIN [Suspect]
     Indication: ENDOMETRIOSIS
  5. ADVIL [Concomitant]
     Dosage: UNK
     Dates: start: 1991
  6. ALLEGRA [Concomitant]
     Dosage: 180 mg, daily
     Route: 048
  7. AMOXIL [Concomitant]
     Dosage: 875 mg, BID
     Route: 048
  8. BACTRIM DS [Concomitant]
     Dosage: 800 mg, BID
     Route: 048
  9. BACTRIM DS [Concomitant]
     Dosage: 160 mg, BID
     Route: 048
  10. BENTYL [Concomitant]
     Dosage: 10 mg, TID
     Route: 048
  11. CHANTIX [Concomitant]
     Route: 048
  12. PROTONIX [Concomitant]
     Dosage: 40 mg, daily
     Route: 048
  13. RHINOCORT AQUA [Concomitant]
     Dosage: 32 ?g, UNK
     Route: 045
  14. ZOFRAN [Concomitant]
     Dosage: 4 mg, TID
     Route: 048
  15. DIFLUCAN [Concomitant]

REACTIONS (6)
  - Cholecystitis [None]
  - Gallbladder injury [None]
  - Pain [None]
  - Injury [None]
  - Fear of disease [None]
  - Pain [None]
